FAERS Safety Report 4627322-3 (Version None)
Quarter: 2005Q1

REPORT INFORMATION
  Report Type: 
  Country: None (occurrence: None)
  Receive Date: 20050331
  Receipt Date: 20050323
  Transmission Date: 20050727
  Serious: Yes (Hospitalization)
  Sender: FDA-Public Use
  Company Number: 200112192BWH

PATIENT
  Age: 36 Year
  Sex: Male
  Weight: 165.5 kg

DRUGS (8)
  1. MOXIFLOXACIN IV (MOXIFLOXACIN) [Suspect]
     Indication: SKIN INFECTION
     Dosage: 400 MG, QD INTRAVENOUS
     Route: 042
     Dates: start: 20010723, end: 20010726
  2. MOXIFLOXACIN PO (MOXIFLOXACIN) [Suspect]
     Indication: SKIN INFECTION
     Dosage: 400 MG, QD, ORAL
     Route: 048
     Dates: start: 20010726, end: 20010729
  3. LITHIUM CARBONATE [Concomitant]
  4. DEPAKOTE [Concomitant]
  5. ZYPREXA [Concomitant]
  6. SYNTHROID [Concomitant]
  7. GEODON [Concomitant]
  8. TRILEPTAL [Concomitant]

REACTIONS (4)
  - CELLULITIS [None]
  - CONDITION AGGRAVATED [None]
  - DRUG HYPERSENSITIVITY [None]
  - DRUG INEFFECTIVE [None]
